FAERS Safety Report 8515405 (Version 4)
Quarter: 2013Q3

REPORT INFORMATION
  Report Type: Spontaneous
  Country: JP (occurrence: JP)
  Receive Date: 20120417
  Receipt Date: 20130725
  Transmission Date: 20140515
  Serious: Yes (Life-Threatening, Hospitalization, Other)
  Sender: FDA-Public Use
  Company Number: PHHY2012JP031664

PATIENT
  Age: 57 Year
  Sex: Female

DRUGS (10)
  1. CLOZARIL (CLOZAPINE) [Suspect]
     Indication: SCHIZOPHRENIA
     Dosage: 12.5 MG DAILY
     Route: 048
     Dates: start: 20120328, end: 20120328
  2. CLOZARIL (CLOZAPINE) [Suspect]
     Dosage: 25 MG
     Route: 048
     Dates: start: 20120329, end: 20120331
  3. CLOZARIL (CLOZAPINE) [Suspect]
     Dosage: 50 MG
     Route: 048
     Dates: start: 20120401, end: 20120403
  4. CLOZARIL (CLOZAPINE) [Suspect]
     Dosage: 75 MG
     Route: 048
     Dates: start: 20120404, end: 20120405
  5. CLOZARIL (CLOZAPINE) [Suspect]
     Dosage: 100 MG
     Route: 048
     Dates: start: 20120406, end: 20120407
  6. CLOZARIL (CLOZAPINE) [Suspect]
     Dosage: 125 MG
     Route: 048
     Dates: start: 20120408, end: 20120412
  7. FLOMOX [Concomitant]
     Dosage: 100 MG, TID
     Route: 048
     Dates: start: 20120409, end: 20120412
  8. ZYPREXA [Concomitant]
     Dosage: 5 MG
     Route: 048
     Dates: start: 20120404
  9. ZYPREXA [Concomitant]
     Dosage: 20 MG
     Route: 048
     Dates: start: 20120428
  10. HOKUNALIN [Concomitant]
     Indication: ASTHMA
     Dosage: 2 MG

REACTIONS (8)
  - Cardiac failure acute [Recovered/Resolved]
  - Blood pressure decreased [Unknown]
  - Pleural effusion [Unknown]
  - Generalised oedema [Unknown]
  - Renal failure acute [Recovered/Resolved]
  - Neuroleptic malignant syndrome [Unknown]
  - Pyrexia [Unknown]
  - Diarrhoea [Unknown]
